FAERS Safety Report 5799163-5 (Version None)
Quarter: 2008Q3

REPORT INFORMATION
  Report Type: 
  Country: None (occurrence: None)
  Receive Date: 20080701
  Receipt Date: 20080620
  Transmission Date: 20090109
  Serious: Yes (Death)
  Sender: FDA-Public Use
  Company Number: APP200800551

PATIENT
  Age: 33 Year
  Sex: Female

DRUGS (4)
  1. DIPRIVAN [Suspect]
     Indication: SEDATION
     Dosage: SEE IMAGE
  2. MORPHINE [Concomitant]
  3. NOREPINEPHRINE BITARTRATE [Concomitant]
  4. PANCURONIUM [Concomitant]

REACTIONS (9)
  - ATRIOVENTRICULAR BLOCK FIRST DEGREE [None]
  - BLOOD TRIGLYCERIDES INCREASED [None]
  - BUNDLE BRANCH BLOCK LEFT [None]
  - BUNDLE BRANCH BLOCK RIGHT [None]
  - CARDIAC ARREST [None]
  - ELECTROMECHANICAL DISSOCIATION [None]
  - HYPOTENSION [None]
  - METABOLIC ACIDOSIS [None]
  - PROPOFOL INFUSION SYNDROME [None]
